FAERS Safety Report 23212897 (Version 11)
Quarter: 2025Q4

REPORT INFORMATION
  Report Type: Report from Study
  Country: CO (occurrence: CO)
  Receive Date: 20231121
  Receipt Date: 20251023
  Transmission Date: 20260118
  Serious: Yes (Other)
  Sender: TAKEDA
  Company Number: CO-TAKEDA-2023TUS070095

PATIENT
  Age: 39 Year
  Sex: Male
  Weight: 73 kg

DRUGS (2)
  1. VEDOLIZUMAB [Suspect]
     Active Substance: VEDOLIZUMAB
     Indication: Colitis ulcerative
     Dosage: 300 MILLIGRAM
  2. MESALAMINE [Suspect]
     Active Substance: MESALAMINE
     Indication: Product used for unknown indication
     Dosage: UNK

REACTIONS (15)
  - Haematochezia [Unknown]
  - Colitis ulcerative [Recovered/Resolved]
  - Somnolence [Recovered/Resolved]
  - Product use issue [Unknown]
  - Remission not achieved [Unknown]
  - Pain in extremity [Unknown]
  - Haemorrhoids [Unknown]
  - Alopecia [Unknown]
  - Large intestine polyp [Unknown]
  - Weight decreased [Unknown]
  - Weight increased [Unknown]
  - Diarrhoea [Recovering/Resolving]
  - Abdominal pain [Unknown]
  - Arthralgia [Unknown]
  - Influenza [Unknown]

NARRATIVE: CASE EVENT DATE: 20230627
